FAERS Safety Report 16541661 (Version 3)
Quarter: 2019Q3

REPORT INFORMATION
  Report Type: Spontaneous
  Country: US (occurrence: US)
  Receive Date: 20190708
  Receipt Date: 20190726
  Transmission Date: 20191004
  Serious: Yes (Other)
  Sender: FDA-Public Use
  Company Number: US-JNJFOC-20190703203

PATIENT
  Age: 5 Year
  Sex: Female

DRUGS (2)
  1. CHILDRENS MOTRIN [Suspect]
     Active Substance: IBUPROFEN
     Indication: ABDOMINAL PAIN UPPER
     Route: 048
     Dates: start: 20190629
  2. CHILDRENS MOTRIN [Suspect]
     Active Substance: IBUPROFEN
     Indication: DIARRHOEA
     Dosage: TWO ADDITIONAL DOSES OF 7.5 ON 30-JUN-2019, ONE IN THE MORNING AND ONE IN THE AFTERNOON.)
     Route: 048
     Dates: start: 20190630, end: 20190630

REACTIONS (2)
  - Hypophagia [Recovered/Resolved]
  - Haematochezia [Recovered/Resolved]

NARRATIVE: CASE EVENT DATE: 20190630
